FAERS Safety Report 9475089 (Version 1)
Quarter: 2013Q3

REPORT INFORMATION
  Report Type: Spontaneous
  Country: US (occurrence: US)
  Receive Date: 20130824
  Receipt Date: 20130824
  Transmission Date: 20140515
  Serious: Yes (Other)
  Sender: FDA-Public Use
  Company Number: US-ROCHE-1261522

PATIENT
  Sex: Male

DRUGS (3)
  1. AVASTIN [Suspect]
     Indication: DIABETIC RETINAL OEDEMA
     Dosage: OU
     Route: 065
  2. LUCENTIS [Suspect]
     Indication: DIABETIC RETINAL OEDEMA
     Route: 065
  3. DIOVAN [Concomitant]
     Indication: HYPERTENSION

REACTIONS (5)
  - Renal failure [Not Recovered/Not Resolved]
  - Rocky mountain spotted fever [Unknown]
  - Lyme disease [Unknown]
  - Blood potassium increased [Unknown]
  - Hypertension [Unknown]
